FAERS Safety Report 19820130 (Version 1)
Quarter: 2021Q3

REPORT INFORMATION
  Report Type: Spontaneous
  Country: US (occurrence: US)
  Receive Date: 20210909
  Receipt Date: 20210909
  Transmission Date: 20211014
  Serious: Yes (Death, Hospitalization)
  Sender: FDA-Public Use
  Company Number: None

PATIENT
  Age: 73 Year
  Sex: Male
  Weight: 72.2 kg

DRUGS (1)
  1. TAXOTERE [Suspect]
     Active Substance: DOCETAXEL
     Dates: end: 20210820

REACTIONS (7)
  - Pleural effusion [None]
  - Chest X-ray abnormal [None]
  - Skin mass [None]
  - Pneumothorax [None]
  - Lung consolidation [None]
  - Dyspnoea [None]
  - Lymphadenopathy [None]

NARRATIVE: CASE EVENT DATE: 20210901
